FAERS Safety Report 5524137-9 (Version None)
Quarter: 2007Q4

REPORT INFORMATION
  Report Type: 
  Country: None (occurrence: None)
  Receive Date: 20071121
  Receipt Date: 20071112
  Transmission Date: 20080405
  Serious: Yes (Hospitalization)
  Sender: FDA-Public Use
  Company Number: JP-MERCK-0710USA00467

PATIENT
  Age: 83 Year
  Sex: Male

DRUGS (4)
  1. FOSAMAX [Suspect]
     Indication: OSTEOPOROSIS
     Route: 048
     Dates: start: 20050105, end: 20050113
  2. LIPIDIL [Concomitant]
     Indication: ARTERIOSCLEROSIS OBLITERANS
     Route: 048
     Dates: start: 20030908, end: 20050113
  3. ANPLAG [Concomitant]
     Route: 048
     Dates: end: 20050113
  4. JUVELA [Concomitant]
     Route: 065
     Dates: end: 20050113

REACTIONS (1)
  - COMPRESSION FRACTURE [None]
